FAERS Safety Report 17883328 (Version 1)
Quarter: 2020Q2

REPORT INFORMATION
  Report Type: Spontaneous
  Country: BR (occurrence: BR)
  Receive Date: 20200611
  Receipt Date: 20200611
  Transmission Date: 20200714
  Serious: Yes (Other)
  Sender: FDA-Public Use
  Company Number: BR-SA-2019SA296100

PATIENT

DRUGS (2)
  1. MYOZYME [Suspect]
     Active Substance: ALGLUCOSIDASE ALFA
     Indication: GLYCOGEN STORAGE DISEASE TYPE II
     Dosage: 20 MG/KG, Q15D
     Route: 041
     Dates: start: 20191010
  2. MYOZYME [Suspect]
     Active Substance: ALGLUCOSIDASE ALFA
     Dosage: 15 MG/KG, Q15D
     Route: 041
     Dates: start: 20190916

REACTIONS (4)
  - Erythema [Recovering/Resolving]
  - Disease progression [Unknown]
  - Flushing [Recovering/Resolving]
  - Hypoventilation [Unknown]

NARRATIVE: CASE EVENT DATE: 20191010
